FAERS Safety Report 17519052 (Version 13)
Quarter: 2024Q4

REPORT INFORMATION
  Report Type: Report from Study
  Country: US (occurrence: US)
  Receive Date: 20200309
  Receipt Date: 20241011
  Transmission Date: 20250115
  Serious: Yes (Hospitalization)
  Sender: TAKEDA
  Company Number: US-SHIRE-US202008296

PATIENT
  Age: 12 Year
  Sex: Female
  Weight: 52 kg

DRUGS (15)
  1. HUMAN IMMUNOGLOBULIN G [Suspect]
     Active Substance: HUMAN IMMUNOGLOBULIN G
     Indication: Immunodeficiency common variable
     Dosage: 8 GRAM, 1/WEEK
     Route: 058
     Dates: start: 20170810
  2. HUMAN IMMUNOGLOBULIN G [Suspect]
     Active Substance: HUMAN IMMUNOGLOBULIN G
     Indication: Primary immunodeficiency syndrome
     Dosage: 8 GRAM, 1/WEEK
     Route: 058
     Dates: start: 20170814
  3. HUMAN IMMUNOGLOBULIN G [Suspect]
     Active Substance: HUMAN IMMUNOGLOBULIN G
     Indication: Hypogammaglobulinaemia
     Dosage: 8 GRAM, 1/WEEK
     Route: 058
     Dates: start: 20171005
  4. HUMAN IMMUNOGLOBULIN G [Suspect]
     Active Substance: HUMAN IMMUNOGLOBULIN G
     Dosage: UNK
     Route: 058
  5. XEMBIFY [Suspect]
     Active Substance: HUMAN IMMUNOGLOBULIN G
     Indication: Product used for unknown indication
     Dosage: UNK
     Route: 065
  6. DIPHENHYDRAMINE [Concomitant]
     Active Substance: DIPHENHYDRAMINE
     Dosage: UNK
     Route: 065
  7. EPINEPHRINE [Concomitant]
     Active Substance: EPINEPHRINE
     Dosage: UNK
     Route: 065
  8. ACETAMINOPHEN [Concomitant]
     Active Substance: ACETAMINOPHEN
     Dosage: UNK
     Route: 065
  9. ADVIL [Concomitant]
     Active Substance: IBUPROFEN
     Dosage: UNK
     Route: 065
  10. LMX [Concomitant]
     Dosage: UNK
     Route: 065
  11. KEFLEX [Concomitant]
     Active Substance: CEPHALEXIN
     Dosage: UNK
     Route: 065
  12. IBUPROFEN [Concomitant]
     Active Substance: IBUPROFEN
     Dosage: UNK
     Route: 065
  13. LIDOCAINE [Concomitant]
     Active Substance: LIDOCAINE
     Indication: Product used for unknown indication
     Dosage: UNK
     Route: 065
  14. BROMFED [Concomitant]
     Active Substance: BROMPHENIRAMINE MALEATE\DEXTROMETHORPHAN HYDROBROMIDE\PSEUDOEPHEDRINE HYDROCHLORIDE
     Indication: Product used for unknown indication
     Dosage: UNK
     Route: 065
  15. DIPHENHYDRAMINE HYDROCHLORIDE [Concomitant]
     Active Substance: DIPHENHYDRAMINE HYDROCHLORIDE
     Dosage: UNK
     Route: 065

REACTIONS (32)
  - Infection [Recovered/Resolved]
  - Influenza [Unknown]
  - Illness [Unknown]
  - Upper limb fracture [Unknown]
  - Fall [Unknown]
  - Paranasal cyst [Unknown]
  - Vitamin D deficiency [Unknown]
  - Bacterial infection [Unknown]
  - Rhinalgia [Unknown]
  - Ehlers-Danlos syndrome [Unknown]
  - Complication associated with device [Unknown]
  - Fatigue [Unknown]
  - Anxiety [Unknown]
  - Migraine [Unknown]
  - Arthralgia [Unknown]
  - Ear infection [Unknown]
  - Sinusitis [Unknown]
  - Urinary tract infection [Unknown]
  - Infusion site rash [Unknown]
  - Syringe issue [Unknown]
  - Ear pain [Unknown]
  - Dermatitis contact [Unknown]
  - Multiple allergies [Unknown]
  - Product physical issue [Unknown]
  - Product dose omission issue [Unknown]
  - Drug ineffective [Unknown]
  - Palpitations [Unknown]
  - Dyspnoea [Unknown]
  - Headache [Unknown]
  - Anaesthetic complication [Unknown]
  - Nausea [Unknown]
  - Swelling [Unknown]

NARRATIVE: CASE EVENT DATE: 20200201
